FAERS Safety Report 7864508-9 (Version None)
Quarter: 2011Q4

REPORT INFORMATION
  Report Type: 
  Country: None (occurrence: None)
  Receive Date: 20111028
  Receipt Date: 20111024
  Transmission Date: 20120403
  Serious: Yes (Other)
  Sender: FDA-Public Use
  Company Number: US-PFIZER INC-2011257997

PATIENT
  Sex: Male
  Weight: 77.551 kg

DRUGS (1)
  1. RELPAX [Suspect]
     Indication: MIGRAINE
     Dosage: 20 MG, 2X/DAY
     Route: 048
     Dates: start: 20110919, end: 20110920

REACTIONS (2)
  - HYPERSENSITIVITY [None]
  - RASH [None]
